FAERS Safety Report 25198870 (Version 1)
Quarter: 2025Q2

REPORT INFORMATION
  Report Type: Spontaneous
  Country: US (occurrence: None)
  Receive Date: 20250412
  Receipt Date: 20250412
  Transmission Date: 20250716
  Serious: Yes (Life-Threatening, Other)
  Sender: FDA-CTU
  Company Number: None

PATIENT
  Age: 36 Year
  Sex: Female

DRUGS (1)
  1. UNSPECIFIED INGREDIENT [Suspect]
     Active Substance: UNSPECIFIED INGREDIENT
     Indication: Immune tolerance induction
     Dates: start: 20241001, end: 20250409

REACTIONS (3)
  - Flushing [None]
  - Throat irritation [None]
  - Refusal of treatment by patient [None]

NARRATIVE: CASE EVENT DATE: 20250409
